FAERS Safety Report 7262529-0 (Version None)
Quarter: 2011Q1

REPORT INFORMATION
  Report Type: 
  Country: None (occurrence: None)
  Receive Date: 20110130
  Receipt Date: 20101210
  Transmission Date: 20110831
  Serious: No
  Sender: FDA-Public Use
  Company Number: US-ABBOTT-10P-163-0690712-00

PATIENT
  Sex: Male
  Weight: 70.37 kg

DRUGS (3)
  1. HUMIRA [Suspect]
     Indication: PSORIATIC ARTHROPATHY
     Dates: start: 20101001
  2. AMBIEN [Concomitant]
     Indication: INSOMNIA
  3. HUMIRA [Suspect]
     Indication: RHEUMATOID ARTHRITIS

REACTIONS (8)
  - NAUSEA [None]
  - DEPRESSION [None]
  - SLEEP DISORDER [None]
  - PYREXIA [None]
  - DECREASED APPETITE [None]
  - WEIGHT DECREASED [None]
  - TREMOR [None]
  - DYSKINESIA [None]
